FAERS Safety Report 10380692 (Version 1)
Quarter: 2014Q3

REPORT INFORMATION
  Report Type: Spontaneous
  Country: JP (occurrence: JP)
  Receive Date: 20140813
  Receipt Date: 20140813
  Transmission Date: 20150326
  Serious: Yes (Other)
  Sender: FDA-Public Use
  Company Number: PHJP2014JP001032

PATIENT
  Age: 31 Year
  Sex: Male

DRUGS (6)
  1. MORPHINE [Suspect]
     Active Substance: MORPHINE
     Indication: PAIN
  2. AGALSIDASE ALFA [Concomitant]
     Active Substance: AGALSIDASE ALFA
     Indication: FABRY^S DISEASE
  3. PREGABALIN. [Suspect]
     Active Substance: PREGABALIN
     Indication: PAIN
     Dosage: 100 MG, UNK
  4. CARBAMAZEPINE. [Suspect]
     Active Substance: CARBAMAZEPINE
     Dosage: 200 MG, UNK
     Route: 048
  5. CARBAMAZEPINE. [Suspect]
     Active Substance: CARBAMAZEPINE
     Indication: PAIN
     Dosage: 100 MG, UNK
     Route: 048
  6. FENTANYL. [Concomitant]
     Active Substance: FENTANYL
     Dosage: 16.8 MG, UNK

REACTIONS (4)
  - Platelet count decreased [Unknown]
  - Drug ineffective [Unknown]
  - Ileus paralytic [Unknown]
  - Pain in extremity [Unknown]
